FAERS Safety Report 18567914 (Version 2)
Quarter: 2020Q4

REPORT INFORMATION
  Report Type: Report from Study
  Country: EG (occurrence: EG)
  Receive Date: 20201202
  Receipt Date: 20201215
  Transmission Date: 20210114
  Serious: Yes (Death, Life-Threatening, Hospitalization, Disabling, Other)
  Sender: FDA-Public Use
  Company Number: EG-AMGEN-EGYSL2020173978

PATIENT
  Age: 72 Year
  Sex: Male
  Weight: 95 kg

DRUGS (10)
  1. XGEVA [Suspect]
     Active Substance: DENOSUMAB
     Indication: PROPHYLAXIS
     Dosage: 1 VIAL, Q3WK
     Route: 058
     Dates: start: 20201024
  2. ONE ALPHA [Concomitant]
     Active Substance: ALFACALCIDOL
     Indication: RENAL IMPAIRMENT
     Dosage: 0.25 UNK, TID
  3. XGEVA [Suspect]
     Active Substance: DENOSUMAB
     Dosage: 1 VIAL, Q2WK
     Route: 058
  4. NALUFIN [Suspect]
     Active Substance: NALBUPHINE HYDROCHLORIDE
     Indication: PRODUCT USED FOR UNKNOWN INDICATION
     Dosage: UNK, APPROXIMATELY 10 CM
     Route: 065
  5. VITAMIN D [COLECALCIFEROL] [Concomitant]
     Active Substance: CHOLECALCIFEROL
     Dosage: UNK
     Dates: start: 20201024
  6. NALUFIN [Suspect]
     Active Substance: NALBUPHINE HYDROCHLORIDE
     Dosage: 1 CM
     Route: 065
  7. TRAJENTA [Concomitant]
     Active Substance: LINAGLIPTIN
     Indication: DIABETES MELLITUS
     Dosage: UNK UNK, QD
  8. CALCIUM [Concomitant]
     Active Substance: CALCIUM
     Dosage: UNK
     Dates: start: 20201024
  9. CALCIUM [Concomitant]
     Active Substance: CALCIUM
     Dosage: UNK
     Route: 042
  10. KETOSTERIL [Concomitant]
     Active Substance: AMINO ACIDS, SOURCE UNSPECIFIED
     Indication: RENAL IMPAIRMENT
     Dosage: UNK

REACTIONS (27)
  - Renal impairment [Fatal]
  - Abdominal pain upper [Unknown]
  - Skin ulcer [Not Recovered/Not Resolved]
  - Drug ineffective [Unknown]
  - Muscle rigidity [Unknown]
  - Toothache [Not Recovered/Not Resolved]
  - Faeces discoloured [Unknown]
  - Diarrhoea [Unknown]
  - Hypoaesthesia oral [Recovered/Resolved]
  - Vomiting [Recovered/Resolved]
  - Vitamin D decreased [Unknown]
  - Rash macular [Recovered/Resolved]
  - Haemoglobin decreased [Unknown]
  - Blood test abnormal [Unknown]
  - Off label use [Unknown]
  - Body temperature increased [Recovered/Resolved]
  - Hypotension [Unknown]
  - Haematocrit decreased [Unknown]
  - Malaise [Unknown]
  - Constipation [Fatal]
  - Red cell distribution width increased [Unknown]
  - Generalised oedema [Unknown]
  - Coma [Fatal]
  - Sepsis [Unknown]
  - Red blood cell count decreased [Unknown]
  - Multiple organ dysfunction syndrome [Fatal]
  - Blood calcium decreased [Unknown]

NARRATIVE: CASE EVENT DATE: 20201024
